FAERS Safety Report 23732323 (Version 1)
Quarter: 2024Q2

REPORT INFORMATION
  Report Type: Spontaneous
  Country: US (occurrence: None)
  Receive Date: 20240410
  Receipt Date: 20240410
  Transmission Date: 20240716
  Serious: No
  Sender: FDA-Public Use
  Company Number: None

PATIENT

DRUGS (1)
  1. MEROPENEM [Suspect]
     Active Substance: MEROPENEM
     Dosage: OTHER ROUTE : INTERVENORS INFUSION;?
     Route: 050

REACTIONS (4)
  - Product label confusion [None]
  - Product design issue [None]
  - Drug dose omission by device [None]
  - Product preparation error [None]
